FAERS Safety Report 24338761 (Version 1)
Quarter: 2024Q3

REPORT INFORMATION
  Report Type: Spontaneous
  Country: CN (occurrence: CN)
  Receive Date: 20240919
  Receipt Date: 20240919
  Transmission Date: 20241017
  Serious: Yes (Hospitalization, Other)
  Sender: NOVARTIS
  Company Number: CN-002147023-NVSC2024CN183903

PATIENT
  Age: 39 Year
  Sex: Male
  Weight: 65 kg

DRUGS (9)
  1. SACUBITRIL\VALSARTAN [Suspect]
     Active Substance: SACUBITRIL\VALSARTAN
     Indication: Hypertension
     Dosage: 100 MG, QD (NASAL FEEDING)
     Route: 045
     Dates: start: 20240901, end: 20240913
  2. AMLODIPINE BESYLATE [Suspect]
     Active Substance: AMLODIPINE BESYLATE
     Indication: Hypertension
     Dosage: 5 MG, QD (NASAL FEEDING)
     Route: 045
     Dates: start: 20240901, end: 20240913
  3. ATORVASTATIN CALCIUM [Suspect]
     Active Substance: ATORVASTATIN CALCIUM
     Indication: Lipids increased
     Dosage: 20 MG, QD (NASAL FEEDING)
     Route: 045
     Dates: start: 20240901, end: 20240906
  4. SODIUM CHLORIDE [Concomitant]
     Active Substance: SODIUM CHLORIDE
     Indication: Vehicle solution use
     Dosage: 50 ML, TID
     Route: 042
     Dates: start: 20240830, end: 20240911
  5. SODIUM CHLORIDE [Concomitant]
     Active Substance: SODIUM CHLORIDE
     Dosage: 250 ML, BID
     Route: 041
     Dates: start: 20240902, end: 20240913
  6. SODIUM CHLORIDE [Concomitant]
     Active Substance: SODIUM CHLORIDE
     Dosage: 100 ML, TID
     Route: 041
     Dates: start: 20240902, end: 20240910
  7. NIMODIPINE [Concomitant]
     Active Substance: NIMODIPINE
     Indication: Symptomatic treatment
     Dosage: 12 MG, TID
     Route: 042
     Dates: start: 20240830, end: 20240911
  8. VANCOMYCIN HYDROCHLORIDE [Concomitant]
     Active Substance: VANCOMYCIN HYDROCHLORIDE
     Indication: Infection
     Dosage: 1 G, BID
     Route: 041
     Dates: start: 20240902, end: 20240913
  9. MEROPENEM [Concomitant]
     Active Substance: MEROPENEM
     Indication: Infection
     Dosage: 2 G, TID
     Route: 041
     Dates: start: 20240902, end: 20240910

REACTIONS (2)
  - Hepatic function abnormal [Recovering/Resolving]
  - Off label use [Unknown]

NARRATIVE: CASE EVENT DATE: 20240901
